FAERS Safety Report 5803807-9 (Version None)
Quarter: 2008Q3

REPORT INFORMATION
  Report Type: 
  Country: None (occurrence: None)
  Receive Date: 20080708
  Receipt Date: 20080703
  Transmission Date: 20090109
  Serious: Yes (Other)
  Sender: FDA-Public Use
  Company Number: US-GILEAD-2008-0016799

PATIENT
  Sex: Female

DRUGS (7)
  1. LETAIRIS [Suspect]
     Indication: PULMONARY ARTERIAL HYPERTENSION
     Route: 048
     Dates: start: 20080507, end: 20080604
  2. REMODULIN [Concomitant]
  3. COUMADIN [Concomitant]
  4. ADVAIR DISKUS 100/50 [Concomitant]
  5. CALTRATE D [Concomitant]
  6. FERROUS SULFATE TAB [Concomitant]
  7. OXYGEN [Concomitant]

REACTIONS (2)
  - NAUSEA [None]
  - VOMITING [None]
